FAERS Safety Report 25357297 (Version 5)
Quarter: 2025Q3

REPORT INFORMATION
  Report Type: Report from Study
  Country: US (occurrence: US)
  Receive Date: 20250526
  Receipt Date: 20250821
  Transmission Date: 20251021
  Serious: No
  Sender: DECIPHERA PHARMACEUTICALS
  Company Number: US-DECIPHERA PHARMACEUTICALS LLC-2025US000597

PATIENT
  Age: 86 Year
  Sex: Male
  Weight: 75.288 kg

DRUGS (3)
  1. QINLOCK [Suspect]
     Active Substance: RIPRETINIB
     Indication: Gastrointestinal stromal tumour
     Dosage: 150 MILLIGRAM, QD
     Route: 048
     Dates: start: 20240411
  2. MAGNESIUM [Suspect]
     Active Substance: MAGNESIUM
     Indication: Cardiac disorder
  3. MAGNESIUM [Suspect]
     Active Substance: MAGNESIUM
     Indication: Prophylaxis

REACTIONS (7)
  - Fall [Unknown]
  - Eructation [Unknown]
  - Asthenia [Unknown]
  - Decreased appetite [Unknown]
  - Vomiting [Unknown]
  - Nausea [Unknown]
  - Abdominal pain upper [Recovering/Resolving]

NARRATIVE: CASE EVENT DATE: 20250101
